FAERS Safety Report 12628001 (Version 1)
Quarter: 2016Q3

REPORT INFORMATION
  Report Type: Spontaneous
  Country: US (occurrence: US)
  Receive Date: 20160807
  Receipt Date: 20160807
  Transmission Date: 20161109
  Serious: No
  Sender: FDA-Public Use
  Company Number: US-TEVA-676134USA

PATIENT
  Age: 35 Year
  Sex: Male

DRUGS (5)
  1. VITAMIN C [Concomitant]
     Active Substance: ASCORBIC ACID
  2. MAGNESIUM [Concomitant]
     Active Substance: MAGNESIUM
  3. FISH OIL [Concomitant]
     Active Substance: FISH OIL
  4. COPAXONE [Suspect]
     Active Substance: GLATIRAMER ACETATE
     Indication: MULTIPLE SCLEROSIS
     Route: 058
     Dates: start: 20160405
  5. FLOMAX [Concomitant]
     Active Substance: TAMSULOSIN HYDROCHLORIDE

REACTIONS (2)
  - Injection site mass [Unknown]
  - Injection site erythema [Unknown]

NARRATIVE: CASE EVENT DATE: 201606
